FAERS Safety Report 21166704 (Version 3)
Quarter: 2022Q4

REPORT INFORMATION
  Report Type: Spontaneous
  Country: IN (occurrence: IN)
  Receive Date: 20220803
  Receipt Date: 20221125
  Transmission Date: 20230112
  Serious: Yes (Other)
  Sender: FDA-Public Use
  Company Number: IN-PFIZER INC-202101575952

PATIENT
  Age: 63 Year
  Sex: Female

DRUGS (2)
  1. PALBOCICLIB [Suspect]
     Active Substance: PALBOCICLIB
     Dosage: 125 MG, 1X/DAY
     Route: 048
     Dates: start: 20210815
  2. PALBOCICLIB [Suspect]
     Active Substance: PALBOCICLIB
     Dosage: 125 MG
     Route: 048
     Dates: start: 20211005, end: 20220815

REACTIONS (12)
  - Neutrophil count decreased [Unknown]
  - White blood cell count decreased [Unknown]
  - Platelet count decreased [Unknown]
  - Blood glucose increased [Unknown]
  - Low density lipoprotein increased [Unknown]
  - Blood iron increased [Unknown]
  - Neoplasm progression [Unknown]
  - Blood iron decreased [Unknown]
  - Blood cholesterol increased [Unknown]
  - White blood cells urine positive [Unknown]
  - Full blood count abnormal [Unknown]
  - Vitamin B12 abnormal [Unknown]
